FAERS Safety Report 23935185 (Version 1)
Quarter: 2024Q2

REPORT INFORMATION
  Report Type: Spontaneous
  Country: FR (occurrence: FR)
  Receive Date: 20240604
  Receipt Date: 20240604
  Transmission Date: 20240716
  Serious: Yes (Hospitalization, Other)
  Sender: FDA-Public Use
  Company Number: FR-AFSSAPS-AVCN2024000372

PATIENT
  Age: 2 Year
  Sex: Female

DRUGS (2)
  1. DIAZEPAM [Suspect]
     Active Substance: DIAZEPAM
     Indication: Product used for unknown indication
     Dosage: UNK
     Route: 048
     Dates: end: 20230123
  2. COCAINE [Suspect]
     Active Substance: COCAINE
     Indication: Product used for unknown indication
     Dosage: UNK
     Route: 065
     Dates: end: 20230123

REACTIONS (5)
  - Asthenia [Recovered/Resolved]
  - Transaminases increased [Recovering/Resolving]
  - Behaviour disorder [Recovered/Resolved]
  - Hypotonia [Recovered/Resolved]
  - Poisoning [Recovered/Resolved]

NARRATIVE: CASE EVENT DATE: 20230123
